FAERS Safety Report 24655655 (Version 1)
Quarter: 2024Q4

REPORT INFORMATION
  Report Type: Other
  Country: US (occurrence: US)
  Receive Date: 20241123
  Receipt Date: 20241123
  Transmission Date: 20250115
  Serious: Yes (Other)
  Sender: APTAPHARMA INC.
  Company Number: US-AptaPharma Inc.-2165756

PATIENT
  Age: 57 Year
  Sex: Male

DRUGS (4)
  1. IBUPROFEN [Suspect]
     Active Substance: IBUPROFEN
     Indication: Product used for unknown indication
  2. ASPIRIN [Suspect]
     Active Substance: ASPIRIN
  3. ACETAMINOPHEN [Concomitant]
     Active Substance: ACETAMINOPHEN
  4. CELECOXIB [Suspect]
     Active Substance: CELECOXIB

REACTIONS (2)
  - NSAID exacerbated respiratory disease [Unknown]
  - Drug intolerance [Unknown]
